FAERS Safety Report 7441770-8 (Version None)
Quarter: 2011Q2

REPORT INFORMATION
  Report Type: 
  Country: None (occurrence: None)
  Receive Date: 20110426
  Receipt Date: 20110426
  Transmission Date: 20111010
  Serious: Yes (Life-Threatening, Other)
  Sender: FDA-Public Use
  Company Number: None

PATIENT
  Age: 37 Year
  Sex: Male
  Weight: 75 kg

DRUGS (1)
  1. RANITIDINE [Suspect]
     Indication: GASTRIC DISORDER
     Dosage: 150MG 1 EACH DAY ORAL
     Route: 048
     Dates: start: 20110324, end: 20110327

REACTIONS (7)
  - PRODUCT ODOUR ABNORMAL [None]
  - ABDOMINAL PAIN UPPER [None]
  - DYSKINESIA [None]
  - DROOLING [None]
  - HEADACHE [None]
  - EXTRAPYRAMIDAL DISORDER [None]
  - PRODUCT CONTAMINATION [None]
